FAERS Safety Report 24195901 (Version 1)
Quarter: 2024Q3

REPORT INFORMATION
  Report Type: Spontaneous
  Country: GB (occurrence: GB)
  Receive Date: 20240809
  Receipt Date: 20240809
  Transmission Date: 20241017
  Serious: Yes (Other)
  Sender: PERRIGO
  Company Number: None

PATIENT
  Sex: Female
  Weight: 70 kg

DRUGS (3)
  1. ULIPRISTAL ACETATE [Suspect]
     Active Substance: ULIPRISTAL ACETATE
     Indication: Product used for unknown indication
     Dosage: UNK
     Route: 065
     Dates: start: 20240728, end: 20240728
  2. AMITRIPTYLINE [Concomitant]
     Active Substance: AMITRIPTYLINE
     Indication: Fibromyalgia
     Route: 065
     Dates: start: 20240101
  3. FOLIC ACID [Concomitant]
     Active Substance: FOLIC ACID
     Indication: Anaemia folate deficiency
     Route: 065
     Dates: start: 20240722

REACTIONS (5)
  - Vulvovaginal dryness [Not Recovered/Not Resolved]
  - Mood swings [Recovering/Resolving]
  - Back pain [Recovering/Resolving]
  - Poor quality sleep [Not Recovered/Not Resolved]
  - Vulva cyst [Not Recovered/Not Resolved]

NARRATIVE: CASE EVENT DATE: 20240728
